FAERS Safety Report 9379539 (Version 1)
Quarter: 2013Q3

REPORT INFORMATION
  Report Type: Spontaneous
  Country: US (occurrence: US)
  Receive Date: 20130702
  Receipt Date: 20130702
  Transmission Date: 20140515
  Serious: Yes (Other)
  Sender: FDA-Public Use
  Company Number: US-BAYER-2013-080595

PATIENT
  Age: 27 Year
  Sex: Female

DRUGS (4)
  1. YASMIN [Suspect]
  2. LITHIUM [Concomitant]
     Dosage: UNK
     Route: 048
     Dates: start: 20120110
  3. SEROQUEL [Concomitant]
     Dosage: UNK
     Route: 048
     Dates: start: 20120110
  4. NEXIUM [Concomitant]
     Dosage: UNK
     Route: 048
     Dates: start: 20120110

REACTIONS (1)
  - Deep vein thrombosis [None]
